FAERS Safety Report 12647002 (Version 1)
Quarter: 2016Q3

REPORT INFORMATION
  Report Type: Spontaneous
  Country: US (occurrence: None)
  Receive Date: 20160811
  Receipt Date: 20160811
  Transmission Date: 20161109
  Serious: Yes (Other)
  Sender: FDA-Public Use
  Company Number: None

PATIENT
  Age: 54 Year
  Sex: Female
  Weight: 95.26 kg

DRUGS (9)
  1. LOSARTAN. [Concomitant]
     Active Substance: LOSARTAN
  2. CYMBALTA [Concomitant]
     Active Substance: DULOXETINE HYDROCHLORIDE
  3. VITAMIN D [Concomitant]
     Active Substance: CHOLECALCIFEROL
  4. SYNTHROID [Concomitant]
     Active Substance: LEVOTHYROXINE SODIUM
  5. TURMERIC [Concomitant]
     Active Substance: TURMERIC
  6. MULTIVITAMIN [Concomitant]
     Active Substance: VITAMINS
  7. CLINDAMYCIN [Suspect]
     Active Substance: CLINDAMYCIN\CLINDAMYCIN PHOSPHATE
     Indication: TOOTH ABSCESS
     Dosage: 21 TABLET(S) THREE TIMES A DAY TAKEN BY MOUTH
     Route: 048
     Dates: start: 20160622, end: 20160629
  8. FISH OIL [Concomitant]
     Active Substance: FISH OIL
  9. CAL/MAG/ZINC [Concomitant]

REACTIONS (4)
  - Clostridium difficile infection [None]
  - Tongue coated [None]
  - Gastrointestinal sounds abnormal [None]
  - Diarrhoea [None]

NARRATIVE: CASE EVENT DATE: 20160714
